FAERS Safety Report 6298025-7 (Version None)
Quarter: 2009Q3

REPORT INFORMATION
  Report Type: 
  Country: None (occurrence: None)
  Receive Date: 20090805
  Receipt Date: 20090730
  Transmission Date: 20100115
  Serious: Yes (Death, Other)
  Sender: FDA-Public Use
  Company Number: US-ELI_LILLY_AND_COMPANY-US200811001392

PATIENT
  Sex: Male
  Weight: 134.24 kg

DRUGS (15)
  1. BYETTA [Suspect]
     Indication: DIABETES MELLITUS
     Dosage: 10 UG, 2/D
     Route: 058
     Dates: start: 20070101, end: 20071109
  2. COUMADIN [Concomitant]
     Indication: ANTICOAGULANT THERAPY
     Dosage: UNK, UNKNOWN
  3. NIFEDIAC [Concomitant]
     Dosage: 30 MG, DAILY (1/D)
     Route: 065
  4. AVAPRO [Concomitant]
     Dosage: 300 MG, DAILY (1/D)
  5. SIMVASTATIN [Concomitant]
     Dosage: 20 MG, DAILY (1/D)
     Route: 065
  6. ISOSORBIDE [Concomitant]
     Dosage: 30 MG, DAILY (1/D)
     Route: 065
  7. PROTONIX [Concomitant]
     Dosage: 40 MG, DAILY (1/D)
     Route: 065
  8. GABAPENTIN [Concomitant]
     Dosage: 300 MG, DAILY (1/D)
     Route: 065
  9. INDERAL [Concomitant]
     Dosage: 80 MG, DAILY (1/D)
     Route: 065
  10. LASIX [Concomitant]
     Dosage: 40 MG, DAILY (1/D)
     Route: 065
  11. PLAVIX [Concomitant]
     Dosage: 75 MG, DAILY (1/D)
     Route: 065
  12. FOSINOPRIL SODIUM [Concomitant]
     Dosage: 20 MG, DAILY (1/D)
  13. OXYBUTYNIN CHLORIDE [Concomitant]
     Dosage: 5 MG, EACH EVENING
  14. ALLOPURINOL [Concomitant]
     Dosage: 300 MG, DAILY (1/D)
  15. NAPROSYN [Concomitant]
     Dosage: UNK, AS NEEDED

REACTIONS (7)
  - ACUTE MYOCARDIAL INFARCTION [None]
  - CARDIAC FAILURE CONGESTIVE [None]
  - CEREBROVASCULAR ACCIDENT [None]
  - DECREASED APPETITE [None]
  - DYSGEUSIA [None]
  - DYSPHAGIA [None]
  - WEIGHT DECREASED [None]
